FAERS Safety Report 8831435 (Version 1)
Quarter: 2012Q4

REPORT INFORMATION
  Report Type: 
  Country: IT (occurrence: IT)
  Receive Date: 20121009
  Receipt Date: 20121009
  Transmission Date: 20130627
  Serious: Yes (Death, Hospitalization)
  Sender: FDA-Public Use
  Company Number: IT-ROCHE-1139432

PATIENT
  Age: 71 Year
  Sex: Male

DRUGS (4)
  1. ZELBORAF [Suspect]
     Indication: METASTATIC MALIGNANT MELANOMA
     Route: 065
     Dates: start: 20120713
  2. BLOPRESID [Concomitant]
     Indication: HYPERTENSION
     Dosage: 16-17.5 mg
     Route: 048
  3. PLASIL [Concomitant]
     Indication: VOMITING
     Route: 065
     Dates: start: 20120914
  4. EFFEXOR [Concomitant]
     Indication: DEPRESSION
     Route: 048

REACTIONS (2)
  - Coma hepatic [Unknown]
  - Death [Fatal]
